FAERS Safety Report 7504252-0 (Version None)
Quarter: 2011Q2

REPORT INFORMATION
  Report Type: 
  Country: None (occurrence: None)
  Receive Date: 20110525
  Receipt Date: 20110510
  Transmission Date: 20111010
  Serious: Yes (Hospitalization)
  Sender: FDA-Public Use
  Company Number: US-UCBSA-032514

PATIENT
  Sex: Female
  Weight: 63.5 kg

DRUGS (4)
  1. SINEMET CR [Concomitant]
     Indication: PARKINSON'S DISEASE
     Dosage: 50/200
     Route: 048
     Dates: start: 20020101, end: 20090306
  2. PARCOPA [Concomitant]
     Indication: PARKINSON'S DISEASE
     Dosage: SINGLE DOSE:1 TABLET
     Route: 048
     Dates: start: 20090604
  3. SINEMET CR [Concomitant]
     Route: 048
     Dates: start: 20090307
  4. ROTIGOTINE [Suspect]
     Indication: PARKINSON'S DISEASE
     Route: 062
     Dates: start: 20081212

REACTIONS (1)
  - FEMUR FRACTURE [None]
